FAERS Safety Report 4779397-9 (Version None)
Quarter: 2005Q3

REPORT INFORMATION
  Report Type: 
  Country: None (occurrence: None)
  Receive Date: 20050927
  Receipt Date: 20050630
  Transmission Date: 20060218
  Serious: Yes (Life-Threatening, Hospitalization)
  Sender: FDA-Public Use
  Company Number: JP-BOEHRINGER INGELHEIM PHARMACEUTICALS, INC.-2005-BP-11121NB

PATIENT
  Sex: Male
  Weight: 52 kg

DRUGS (7)
  1. MICARDIS [Suspect]
     Indication: ESSENTIAL HYPERTENSION
     Route: 048
     Dates: start: 20040309, end: 20040605
  2. SERMION [Concomitant]
     Indication: CEREBRAL INFARCTION
     Route: 048
     Dates: start: 20040308, end: 20040605
  3. MARZULENE S [Concomitant]
     Indication: GASTRITIS
     Route: 048
     Dates: start: 20040308, end: 20040605
  4. BUFFERIN [Concomitant]
     Indication: CEREBRAL INFARCTION
     Route: 048
     Dates: start: 20040308, end: 20040605
  5. PAXIL [Concomitant]
     Indication: DEPRESSION
     Route: 048
     Dates: start: 20040308, end: 20040605
  6. DEPAS [Concomitant]
     Indication: INSOMNIA
     Route: 048
     Dates: start: 20040308, end: 20040605
  7. HALCION [Concomitant]
     Indication: INSOMNIA
     Route: 048
     Dates: start: 20040308, end: 20040605

REACTIONS (2)
  - APLASTIC ANAEMIA [None]
  - CONDITION AGGRAVATED [None]
